FAERS Safety Report 19728210 (Version 1)
Quarter: 2021Q3

REPORT INFORMATION
  Report Type: Spontaneous
  Country: DE (occurrence: DE)
  Receive Date: 20210820
  Receipt Date: 20210820
  Transmission Date: 20211014
  Serious: Yes (Hospitalization)
  Sender: FDA-Public Use
  Company Number: DE-TEVA-2021-DE-1942491

PATIENT
  Age: 87 Year
  Sex: Male

DRUGS (13)
  1. TAMSULOSIN [Concomitant]
     Active Substance: TAMSULOSIN
     Dosage: .4 MILLIGRAM DAILY; 1?0?0?0
     Route: 048
  2. COTRIMOXAZOL AL [Concomitant]
     Active Substance: SULFAMETHOXAZOLE\TRIMETHOPRIM
     Dosage: 160 | 800 MG, FROM JUNE 10TH
     Route: 048
  3. ACETYLSALICYLSAURE [Concomitant]
     Active Substance: ASPIRIN
     Dosage: 100 MILLIGRAM DAILY;  0?1?0?0
     Route: 048
  4. CIPROFLOXACIN. [Suspect]
     Active Substance: CIPROFLOXACIN
     Dosage: 500 MG, TWICE A DAY FROM JUNE 8TH TO JUNE 10TH, TABLETS
     Route: 048
  5. NALOXONE W/OXYCODONE [Concomitant]
     Active Substance: NALOXONE HYDROCHLORIDE\OXYCODONE HYDROCHLORIDE
     Dosage: 1 DOSAGE FORMS DAILY; 5 | 10 MG, 0?0?1?0, SUSTAINED?RELEASE TABLETS
     Route: 048
  6. BERODUAL N [Concomitant]
     Active Substance: FENOTEROL HYDROBROMIDE\IPRATROPIUM BROMIDE
     Dosage: IF NECESSARY, METERED DOSE INHALER
     Route: 055
  7. LAXOBERAL ABFUHR?TROPFEN 7,5MG/ML [Concomitant]
     Dosage: IF NECESSARY, DROPS
     Route: 048
  8. MACROGOL BETA PLUS ELEKTROLYTE [Concomitant]
     Dosage: 3 DOSAGE FORMS DAILY; 1?1?1?0, BAG:ELECTROLYTES
     Route: 048
  9. ERLEADA [Suspect]
     Active Substance: APALUTAMIDE
     Dosage: 60 MG, TABLETS
     Route: 048
  10. PREGABALIN. [Suspect]
     Active Substance: PREGABALIN
     Dosage: 2 DOSAGE FORMS DAILY; 25 MG, 2?0?0?0
     Route: 048
  11. ZOLPIDEM [Concomitant]
     Active Substance: ZOLPIDEM TARTRATE
     Dosage: 10 MG, IF NECESSARY
     Route: 048
  12. RAMIPRIL. [Concomitant]
     Active Substance: RAMIPRIL
     Dosage: 5 MILLIGRAM DAILY; 2.5 MG, 1?0?1?0
     Route: 048
  13. METOPROLOL. [Concomitant]
     Active Substance: METOPROLOL
     Dosage: 95 MILLIGRAM DAILY; ?47.5 MG, 1?0?1?0, PROLONGED?RELEASE TABLETS
     Route: 048

REACTIONS (2)
  - Fall [Unknown]
  - Haematuria [Unknown]
